FAERS Safety Report 9832052 (Version 2)
Quarter: 2014Q1

REPORT INFORMATION
  Report Type: Report from Study
  Country: AU (occurrence: AU)
  Receive Date: 20140121
  Receipt Date: 20140124
  Transmission Date: 20141002
  Serious: Yes (Death, Other)
  Sender: FDA-Public Use
  Company Number: AU-PFIZER INC-2014012901

PATIENT
  Age: 30 Year
  Sex: Female

DRUGS (6)
  1. IBUPROFEN [Suspect]
     Dosage: UNK
  2. PARACETAMOL [Suspect]
     Dosage: UNK
  3. DULOXETINE [Suspect]
     Dosage: UNK
  4. CODEINE [Suspect]
     Dosage: UNK
  5. DIAZEPAM [Suspect]
     Dosage: UNK
  6. PROPRANOLOL [Suspect]
     Dosage: UNK

REACTIONS (3)
  - Toxicity to various agents [Fatal]
  - Pulmonary oedema [Fatal]
  - Respiratory tract haemorrhage [Fatal]
